FAERS Safety Report 18256712 (Version 1)
Quarter: 2020Q3

REPORT INFORMATION
  Report Type: Spontaneous
  Country: US (occurrence: US)
  Receive Date: 20200910
  Receipt Date: 20200910
  Transmission Date: 20201103
  Serious: Yes (Death)
  Sender: FDA-Public Use
  Company Number: None

PATIENT
  Age: 88 Year
  Sex: Female

DRUGS (1)
  1. PIQRAY [Suspect]
     Active Substance: ALPELISIB
     Indication: BREAST CANCER
     Route: 048
     Dates: start: 202002

REACTIONS (4)
  - Pulmonary hypertension [None]
  - Disease complication [None]
  - Respiratory failure [None]
  - Breast cancer [None]

NARRATIVE: CASE EVENT DATE: 20200904
